FAERS Safety Report 21032264 (Version 2)
Quarter: 2022Q3

REPORT INFORMATION
  Report Type: Report from Study
  Country: US (occurrence: US)
  Receive Date: 20220701
  Receipt Date: 20220808
  Transmission Date: 20221027
  Serious: Yes (Hospitalization, Other)
  Sender: FDA-Public Use
  Company Number: US-TAKEDA-US202032625

PATIENT
  Sex: Female

DRUGS (1)
  1. HUMAN IMMUNOGLOBULIN G\HYALURONIDASE RECOMBINANT HUMAN [Suspect]
     Active Substance: HUMAN IMMUNOGLOBULIN G\HYALURONIDASE RECOMBINANT HUMAN
     Indication: Immunodeficiency common variable
     Dosage: UNK
     Route: 065

REACTIONS (13)
  - Knee operation [Unknown]
  - Herpes zoster [Recovered/Resolved]
  - Fall [Unknown]
  - Knee arthroplasty [Not Recovered/Not Resolved]
  - Infusion site discomfort [Unknown]
  - Device infusion issue [Unknown]
  - Gait disturbance [Unknown]
  - Influenza like illness [Unknown]
  - Blood glucose abnormal [Not Recovered/Not Resolved]
  - Sleep apnoea syndrome [Not Recovered/Not Resolved]
  - Joint injury [Unknown]
  - Myalgia [Unknown]
  - Head injury [Unknown]
